FAERS Safety Report 5828776-7 (Version None)
Quarter: 2008Q3

REPORT INFORMATION
  Report Type: 
  Country: None (occurrence: None)
  Receive Date: 20080731
  Receipt Date: 20080728
  Transmission Date: 20090109
  Serious: Yes (Other)
  Sender: FDA-Public Use
  Company Number: US-MERCK-0807USA05171

PATIENT
  Age: 91 Year
  Sex: Male
  Weight: 68 kg

DRUGS (9)
  1. VIAGRA [Suspect]
     Indication: ERECTILE DYSFUNCTION
     Route: 065
     Dates: start: 19980101
  2. VIAGRA [Suspect]
     Route: 065
     Dates: start: 20040101
  3. TIMOPTIC [Suspect]
     Indication: GLAUCOMA
     Route: 047
  4. XALATAN [Suspect]
     Indication: GLAUCOMA
     Route: 065
  5. FLOMAX [Concomitant]
     Route: 065
  6. VITAMIN D (UNSPECIFIED) [Concomitant]
     Route: 065
  7. CALCIUM (UNSPECIFIED) [Concomitant]
     Route: 065
  8. MULTIVITAMIN [Concomitant]
     Route: 065
  9. ASPIRIN [Concomitant]
     Route: 048

REACTIONS (2)
  - BLOOD POTASSIUM DECREASED [None]
  - RETINAL TEAR [None]
